FAERS Safety Report 9358734 (Version 1)
Quarter: 2013Q2

REPORT INFORMATION
  Report Type: Spontaneous
  Country: US (occurrence: US)
  Receive Date: 20130620
  Receipt Date: 20130620
  Transmission Date: 20140414
  Serious: Yes (Other)
  Sender: FDA-Public Use
  Company Number: US-JNJFOC-20130607211

PATIENT
  Sex: Female

DRUGS (1)
  1. DURAGESIC [Suspect]
     Indication: PRODUCT USED FOR UNKNOWN INDICATION
     Route: 062

REACTIONS (5)
  - Hepatic lesion [Unknown]
  - Hepatic cyst [Unknown]
  - Application site vesicles [Unknown]
  - Hyperhidrosis [Unknown]
  - Asthenia [Unknown]
